FAERS Safety Report 20527731 (Version 2)
Quarter: 2022Q3

REPORT INFORMATION
  Report Type: Spontaneous
  Country: US (occurrence: US)
  Receive Date: 20220228
  Receipt Date: 20220707
  Transmission Date: 20221027
  Serious: Yes (Other)
  Sender: FDA-Public Use
  Company Number: US-PFIZER INC-2021000581

PATIENT
  Age: 52 Year
  Sex: Female

DRUGS (1)
  1. XELJANZ XR [Suspect]
     Active Substance: TOFACITINIB CITRATE
     Dosage: 11 MG
     Dates: start: 20201229

REACTIONS (11)
  - Condition aggravated [Unknown]
  - Product dose omission issue [Unknown]
  - Pain [Unknown]
  - Discomfort [Unknown]
  - Joint stiffness [Unknown]
  - Musculoskeletal disorder [Unknown]
  - Loss of personal independence in daily activities [Unknown]
  - Dizziness [Unknown]
  - Hot flush [Unknown]
  - Depression [Unknown]
  - Arthralgia [Not Recovered/Not Resolved]
